FAERS Safety Report 24700461 (Version 1)
Quarter: 2024Q4

REPORT INFORMATION
  Report Type: Spontaneous
  Country: US (occurrence: US)
  Receive Date: 20241205
  Receipt Date: 20241205
  Transmission Date: 20250115
  Serious: No
  Sender: Unknown Manufacturer
  Company Number: US-MIRUM PHARMACEUTICALS, INC.-US-MIR-24-00830

PATIENT
  Sex: Female

DRUGS (2)
  1. LIVMARLI [Suspect]
     Active Substance: MARALIXIBAT CHLORIDE
     Indication: Alagille syndrome
     Dosage: 1.5 MILLIGRAM PER MILLILITRE, UNK
     Route: 065
     Dates: start: 202407
  2. LIVMARLI [Suspect]
     Active Substance: MARALIXIBAT CHLORIDE
     Dosage: 3 MILLIGRAM PER MILLILITRE, UNK
     Route: 065

REACTIONS (5)
  - Flatulence [Unknown]
  - Feeding disorder [Unknown]
  - Middle insomnia [Unknown]
  - Nausea [Unknown]
  - Diarrhoea [Unknown]

NARRATIVE: CASE EVENT DATE: 20240101
